FAERS Safety Report 18063181 (Version 1)
Quarter: 2020Q3

REPORT INFORMATION
  Report Type: Spontaneous
  Country: US (occurrence: US)
  Receive Date: 20200723
  Receipt Date: 20200723
  Transmission Date: 20201103
  Serious: Yes (Hospitalization, Disabling, Other)
  Sender: FDA-Public Use
  Company Number: US-PURDUE-USA-2020-0159241

PATIENT
  Sex: Male

DRUGS (1)
  1. OXYCONTIN [Suspect]
     Active Substance: OXYCODONE HYDROCHLORIDE
     Indication: NEURALGIA
     Route: 048

REACTIONS (5)
  - Imprisonment [Not Recovered/Not Resolved]
  - Emotional distress [Unknown]
  - Overdose [Unknown]
  - Crime [Unknown]
  - Drug dependence [Unknown]

NARRATIVE: CASE EVENT DATE: 2005
